FAERS Safety Report 20304393 (Version 1)
Quarter: 2022Q1

REPORT INFORMATION
  Report Type: Spontaneous
  Country: US (occurrence: None)
  Receive Date: 20220105
  Receipt Date: 20220105
  Transmission Date: 20220423
  Serious: Yes (Other)
  Sender: FDA-Public Use
  Company Number: None

PATIENT
  Age: 45 Year
  Sex: Male
  Weight: 121.5 kg

DRUGS (1)
  1. SOTROVIMAB [Suspect]
     Active Substance: SOTROVIMAB
     Indication: COVID-19
     Dosage: FREQUENCY : AS NEEDED;?
     Route: 041
     Dates: start: 20220105, end: 20220105

REACTIONS (2)
  - Dizziness [None]
  - Pallor [None]

NARRATIVE: CASE EVENT DATE: 20220105
